FAERS Safety Report 17338158 (Version 13)
Quarter: 2020Q4

REPORT INFORMATION
  Report Type: Spontaneous
  Country: US (occurrence: US)
  Receive Date: 20200129
  Receipt Date: 20201027
  Transmission Date: 20210113
  Serious: No
  Sender: FDA-Public Use
  Company Number: US-DSJP-DSU-2020-101925

PATIENT
  Sex: Female

DRUGS (2)
  1. TURALIO [Suspect]
     Active Substance: PEXIDARTINIB HYDROCHLORIDE
     Indication: NEOPLASM MALIGNANT
     Dosage: 200MG QAM 400MG QPM
     Route: 048
     Dates: start: 20200109
  2. TURALIO [Suspect]
     Active Substance: PEXIDARTINIB HYDROCHLORIDE
     Indication: SYNOVITIS
     Dosage: 400 MG, BID
     Route: 048

REACTIONS (14)
  - Candida infection [Recovered/Resolved]
  - Arthralgia [Unknown]
  - Pain [Not Recovered/Not Resolved]
  - Feeling abnormal [Recovering/Resolving]
  - Product dose omission issue [Not Recovered/Not Resolved]
  - Weight increased [Unknown]
  - Limb injury [Not Recovered/Not Resolved]
  - Oral herpes [Recovered/Resolved]
  - Therapy cessation [Unknown]
  - Decreased appetite [Recovering/Resolving]
  - Off label use [Unknown]
  - Infection [Not Recovered/Not Resolved]
  - Hair colour changes [Recovered/Resolved]
  - Tumour pain [Unknown]

NARRATIVE: CASE EVENT DATE: 2020
